FAERS Safety Report 5303208-6 (Version None)
Quarter: 2007Q2

REPORT INFORMATION
  Report Type: 
  Country: None (occurrence: None)
  Receive Date: 20070420
  Receipt Date: 20070416
  Transmission Date: 20071010
  Serious: Yes (Death, Hospitalization)
  Sender: FDA-Public Use
  Company Number: ES-BRISTOL-MYERS SQUIBB COMPANY-13707922

PATIENT
  Age: 62 Year
  Sex: Male

DRUGS (2)
  1. CISPLATIN [Suspect]
     Indication: SQUAMOUS CELL CARCINOMA
     Route: 042
     Dates: start: 20050919, end: 20050919
  2. FLUOROURACIL [Suspect]
     Indication: SQUAMOUS CELL CARCINOMA
     Route: 042
     Dates: start: 20050919, end: 20050919

REACTIONS (9)
  - ABDOMINAL PAIN [None]
  - DIARRHOEA [None]
  - HEPATOMEGALY [None]
  - HYPOALBUMINAEMIA [None]
  - PYREXIA [None]
  - RECTAL HAEMORRHAGE [None]
  - RENAL FAILURE [None]
  - SEPSIS [None]
  - THROMBOCYTOPENIA [None]
